FAERS Safety Report 9451559 (Version 1)
Quarter: 2013Q3

REPORT INFORMATION
  Report Type: Spontaneous
  Country: JP (occurrence: JP)
  Receive Date: 20130811
  Receipt Date: 20130811
  Transmission Date: 20140515
  Serious: Yes (Hospitalization)
  Sender: FDA-Public Use
  Company Number: JP-SANOFI-AVENTIS-2013SA078843

PATIENT
  Age: 67 Year
  Sex: Female
  Weight: 32.7 kg

DRUGS (2)
  1. PLAVIX [Suspect]
     Indication: PRODUCT USED FOR UNKNOWN INDICATION
     Route: 065
  2. BLINDED THERAPY [Concomitant]
     Dates: start: 20110516

REACTIONS (1)
  - Cholelithiasis [Unknown]
